FAERS Safety Report 4600130-5 (Version None)
Quarter: 2005Q1

REPORT INFORMATION
  Report Type: 
  Country: None (occurrence: None)
  Receive Date: 20050303
  Receipt Date: 20050221
  Transmission Date: 20050727
  Serious: Yes (Hospitalization)
  Sender: FDA-Public Use
  Company Number: 2005-02-1362

PATIENT
  Sex: Female

DRUGS (3)
  1. TEMODAR [Suspect]
     Indication: GLIOBLASTOMA MULTIFORME
     Dosage: ORAL
     Route: 048
     Dates: start: 20041201, end: 20041201
  2. RADIATION THERAPY [Concomitant]
  3. GLIOBLASTOMA MULTIFORME [Concomitant]

REACTIONS (2)
  - APLASTIC ANAEMIA [None]
  - BONE MARROW DEPRESSION [None]
